FAERS Safety Report 24789946 (Version 1)
Quarter: 2024Q4

REPORT INFORMATION
  Report Type: Spontaneous
  Country: CN (occurrence: CN)
  Receive Date: 20241230
  Receipt Date: 20241230
  Transmission Date: 20250115
  Serious: Yes (Hospitalization)
  Sender: GUERBET
  Company Number: CN-GUERBET / FUNDTRIP PHARMACEUTICALS-CN-20240341

PATIENT
  Age: 57 Year
  Sex: Male

DRUGS (8)
  1. IOVERSOL [Suspect]
     Active Substance: IOVERSOL
     Indication: Angiogram cerebral
     Route: 042
     Dates: start: 20220527, end: 20220527
  2. LAMOTRIGINE [Concomitant]
     Active Substance: LAMOTRIGINE
     Indication: Epilepsy
     Route: 048
  3. AMLODIPINE BESYLATE [Concomitant]
     Active Substance: AMLODIPINE BESYLATE
     Indication: Hypertension
     Route: 048
  4. TELMISARTAN [Concomitant]
     Active Substance: TELMISARTAN
     Indication: Hypertension
     Route: 048
  5. LANSOPRAZOLE [Concomitant]
     Active Substance: LANSOPRAZOLE
     Indication: Product used for unknown indication
     Route: 041
     Dates: start: 20220505
  6. INSULIN NOS [Concomitant]
     Active Substance: INSULIN NOS
     Indication: Product used for unknown indication
     Route: 041
     Dates: start: 20220505
  7. MANNITOL [Concomitant]
     Active Substance: MANNITOL
     Indication: Product used for unknown indication
     Dosage: EVERY 8 HOURS
     Route: 041
     Dates: start: 20220505
  8. Ancrud [Concomitant]
     Route: 030
     Dates: start: 20220505

REACTIONS (3)
  - Drug eruption [Recovered/Resolved]
  - Conjunctivitis allergic [Recovered/Resolved]
  - Burning sensation [Recovered/Resolved]

NARRATIVE: CASE EVENT DATE: 20220527
